FAERS Safety Report 21557413 (Version 2)
Quarter: 2025Q2

REPORT INFORMATION
  Report Type: Spontaneous
  Country: US (occurrence: US)
  Receive Date: 20221105
  Receipt Date: 20250611
  Transmission Date: 20250716
  Serious: Yes (Other)
  Sender: AUROBINDO
  Company Number: US-AUROBINDO-AUR-APL-2022-046522

PATIENT
  Age: 27 Year
  Sex: Female

DRUGS (24)
  1. ALPRAZOLAM [Suspect]
     Active Substance: ALPRAZOLAM
     Indication: Intensive care unit delirium
     Dosage: 1.25 MILLIGRAM, 3 TIMES A DAY
     Route: 065
  2. CLONAZEPAM [Suspect]
     Active Substance: CLONAZEPAM
     Indication: Intensive care unit delirium
     Route: 065
  3. DEXMEDETOMIDINE HYDROCHLORIDE [Suspect]
     Active Substance: DEXMEDETOMIDINE HYDROCHLORIDE
     Indication: Intensive care unit delirium
     Route: 065
  4. GABAPENTIN [Suspect]
     Active Substance: GABAPENTIN
     Indication: Intensive care unit delirium
     Route: 065
  5. HYDROMORPHONE [Suspect]
     Active Substance: HYDROMORPHONE
     Indication: Intensive care unit delirium
     Route: 042
  6. KETAMINE HYDROCHLORIDE [Suspect]
     Active Substance: KETAMINE HYDROCHLORIDE
     Indication: Intensive care unit delirium
     Route: 065
  7. METHADONE [Suspect]
     Active Substance: METHADONE HYDROCHLORIDE
     Indication: Intensive care unit delirium
     Dosage: 10 MILLIGRAM, 3 TIMES A DAY
  8. OXYCODONE [Suspect]
     Active Substance: OXYCODONE
     Indication: Intensive care unit delirium
     Route: 065
  9. QUETIAPINE [Suspect]
     Active Substance: QUETIAPINE
     Indication: Intensive care unit delirium
     Dosage: 50 MILLIGRAM, TWO TIMES A DAY
     Route: 065
  10. QUETIAPINE [Suspect]
     Active Substance: QUETIAPINE
     Dosage: 200 MILLIGRAM, TWO TIMES A DAY
     Route: 065
  11. SERTRALINE [Suspect]
     Active Substance: SERTRALINE HYDROCHLORIDE
     Indication: Intensive care unit delirium
     Route: 065
  12. TRAZODONE [Suspect]
     Active Substance: TRAZODONE HYDROCHLORIDE
     Indication: Intensive care unit delirium
     Route: 065
  13. DIAZEPAM [Suspect]
     Active Substance: DIAZEPAM
     Indication: Intensive care unit delirium
     Dosage: 5 MILLIGRAM, 3 TIMES A DAY
     Route: 065
  14. FENTANYL [Suspect]
     Active Substance: FENTANYL
     Indication: Sedation
     Route: 065
  15. FENTANYL [Suspect]
     Active Substance: FENTANYL
     Indication: Intensive care unit delirium
  16. FENTANYL [Suspect]
     Active Substance: FENTANYL
     Indication: Intensive care unit delirium
     Route: 065
  17. FENTANYL [Suspect]
     Active Substance: FENTANYL
     Route: 065
  18. HALOPERIDOL [Suspect]
     Active Substance: HALOPERIDOL
     Indication: Intensive care unit delirium
     Dosage: 6 MILLIGRAM, ONCE A DAY, AS NEEDED
     Route: 065
  19. PROPOFOL [Suspect]
     Active Substance: PROPOFOL
     Indication: Sedation
     Route: 065
  20. PROPOFOL [Suspect]
     Active Substance: PROPOFOL
     Indication: Intensive care unit delirium
     Route: 065
  21. LORAZEPAM [Suspect]
     Active Substance: LORAZEPAM
     Indication: Intensive care unit delirium
     Dosage: 8 MILLIGRAM, ONCE A DAY, AS NEEDED
     Route: 065
  22. LORAZEPAM [Suspect]
     Active Substance: LORAZEPAM
     Route: 065
  23. MIDAZOLAM [Suspect]
     Active Substance: MIDAZOLAM
     Indication: Intensive care unit delirium
     Route: 065
  24. VALPROIC ACID [Concomitant]
     Active Substance: VALPROIC ACID
     Indication: Intensive care unit delirium
     Dosage: 250 MILLIGRAM, TWO TIMES A DAY

REACTIONS (2)
  - Posterior reversible encephalopathy syndrome [Unknown]
  - Treatment failure [Unknown]
